FAERS Safety Report 8233991-1 (Version None)
Quarter: 2012Q1

REPORT INFORMATION
  Report Type: 
  Country: None (occurrence: None)
  Receive Date: 20120326
  Receipt Date: 20120314
  Transmission Date: 20120608
  Serious: Yes (Hospitalization, Other)
  Sender: FDA-Public Use
  Company Number: US-SANOFI-AVENTIS-2012SA017263

PATIENT
  Age: 81 Year
  Sex: Male
  Weight: 82.1 kg

DRUGS (22)
  1. PLAVIX [Suspect]
     Indication: ANTIPLATELET THERAPY
     Route: 048
     Dates: start: 20110926
  2. PEPCID [Concomitant]
  3. FERROUS GLUCONATE [Concomitant]
  4. NOVOLOG [Concomitant]
  5. FISH OIL [Concomitant]
  6. LOVENOX [Suspect]
     Indication: THROMBOSIS PROPHYLAXIS
     Route: 058
     Dates: start: 20110926
  7. VITAMIN TAB [Concomitant]
  8. ZOFRAN [Concomitant]
  9. AMLODIPINE BESYLATE [Concomitant]
  10. XARELTO [Suspect]
     Route: 048
     Dates: start: 20110928, end: 20110929
  11. ASPIRIN [Suspect]
     Indication: ANTIPLATELET THERAPY
     Route: 048
     Dates: start: 20110926
  12. FLAXSEED OIL [Concomitant]
  13. MIRALAX [Concomitant]
  14. PROSCAR [Concomitant]
  15. LANTUS [Concomitant]
  16. LISINOPRIL [Concomitant]
  17. ZOCOR [Concomitant]
  18. VITAMIN B COMPLEX CAP [Concomitant]
  19. COREG [Concomitant]
  20. FORTAZ [Concomitant]
  21. ACETAMINOPHEN [Concomitant]
  22. SODIUM CHLORIDE [Concomitant]

REACTIONS (2)
  - DEEP VEIN THROMBOSIS [None]
  - OEDEMA PERIPHERAL [None]
